FAERS Safety Report 4522860-6 (Version None)
Quarter: 2004Q4

REPORT INFORMATION
  Report Type: 
  Country: None (occurrence: None)
  Receive Date: 20041209
  Receipt Date: 20041203
  Transmission Date: 20050328
  Serious: Yes (Life-Threatening, Hospitalization)
  Sender: FDA-Public Use
  Company Number: US-MERCK-0412USA00503

PATIENT
  Age: 77 Year
  Sex: Female

DRUGS (7)
  1. VIOXX [Suspect]
     Indication: ARTHRITIS
     Route: 048
     Dates: start: 20010101, end: 20041001
  2. ESTRADIOL [Concomitant]
     Route: 065
  3. ACTONEL [Concomitant]
     Route: 065
  4. DETROL [Concomitant]
     Route: 065
  5. LIPITOR [Concomitant]
     Route: 065
  6. TEGRETOL [Concomitant]
     Route: 065
  7. CARBAMAZEPINE [Concomitant]
     Route: 065

REACTIONS (1)
  - MYOCARDIAL INFARCTION [None]
